FAERS Safety Report 7275630-2 (Version None)
Quarter: 2011Q1

REPORT INFORMATION
  Report Type: 
  Country: None (occurrence: None)
  Receive Date: 20110202
  Receipt Date: 20110202
  Transmission Date: 20110831
  Serious: Yes (Other)
  Sender: FDA-Public Use
  Company Number: None

PATIENT
  Age: 71 Year
  Sex: Male
  Weight: 90.7194 kg

DRUGS (1)
  1. BICALUTAMIDE [Suspect]
     Indication: PROSTATE CANCER
     Dosage: 50MG 1 TABLET DAILY BY MOUTH
     Route: 048
     Dates: start: 20101119, end: 20101123

REACTIONS (4)
  - MUSCULOSKELETAL STIFFNESS [None]
  - BLOOD URINE PRESENT [None]
  - ARTHRALGIA [None]
  - BONE PAIN [None]
